FAERS Safety Report 8920845 (Version 1)
Quarter: 2012Q4

REPORT INFORMATION
  Report Type: 
  Country: TH (occurrence: TH)
  Receive Date: 20121121
  Receipt Date: 20121121
  Transmission Date: 20130627
  Serious: Yes (Other)
  Sender: FDA-Public Use
  Company Number: TH-ASTRAZENECA-2012SE85947

PATIENT
  Age: 42 Year
  Sex: Male

DRUGS (2)
  1. ATENOLOL [Suspect]
     Indication: HYPERTENSION
  2. ENALAPRIL [Concomitant]
     Indication: HYPERTENSION

REACTIONS (1)
  - Pemphigoid [Recovered/Resolved]
